FAERS Safety Report 7942501-5 (Version None)
Quarter: 2011Q4

REPORT INFORMATION
  Report Type: 
  Country: None (occurrence: None)
  Receive Date: 20111128
  Receipt Date: 20111006
  Transmission Date: 20120403
  Serious: Yes (Hospitalization)
  Sender: FDA-Public Use
  Company Number: JP-GLAXOSMITHKLINE-B0754242A

PATIENT
  Sex: Female

DRUGS (12)
  1. VALPROATE SODIUM [Suspect]
     Dosage: 400MG PER DAY
     Route: 048
     Dates: start: 20110812, end: 20111003
  2. DOGMATYL [Concomitant]
     Dosage: 50MG PER DAY
     Route: 030
     Dates: start: 20110916, end: 20110916
  3. VALPROATE SODIUM [Suspect]
     Indication: BIPOLAR DISORDER
     Dosage: 800MG PER DAY
     Route: 048
     Dates: start: 20110714, end: 20110812
  4. ABILIFY [Concomitant]
     Indication: BIPOLAR DISORDER
     Dosage: 6MG PER DAY
     Route: 048
  5. LAMICTAL [Suspect]
     Indication: BIPOLAR DISORDER
     Route: 048
     Dates: start: 20110905, end: 20110921
  6. HIRNAMIN [Concomitant]
     Indication: BIPOLAR DISORDER
     Dosage: 40MG PER DAY
     Route: 048
  7. MEILAX [Concomitant]
     Indication: BIPOLAR DISORDER
     Dosage: 2MG PER DAY
     Route: 048
  8. NEUROTROPIN [Concomitant]
     Route: 042
     Dates: start: 20110921, end: 20110921
  9. FLUNITRAZEPAM [Concomitant]
     Indication: INSOMNIA
     Dosage: 4MG PER DAY
     Route: 048
  10. METLIGINE [Concomitant]
     Indication: HYPOTENSION
     Dosage: 4MG PER DAY
     Route: 048
  11. PURSENNID [Concomitant]
     Indication: CONSTIPATION
     Dosage: 6MG PER DAY
     Route: 048
  12. UNKNOWN DRUG [Concomitant]
     Route: 042
     Dates: start: 20110921, end: 20110921

REACTIONS (11)
  - GENERALISED ERYTHEMA [None]
  - WHITE BLOOD CELL COUNT INCREASED [None]
  - EOSINOPHIL PERCENTAGE ABNORMAL [None]
  - NEUTROPHIL PERCENTAGE INCREASED [None]
  - STEVENS-JOHNSON SYNDROME [None]
  - LYMPHOCYTE PERCENTAGE INCREASED [None]
  - HYPERAEMIA [None]
  - MONOCYTE PERCENTAGE INCREASED [None]
  - C-REACTIVE PROTEIN INCREASED [None]
  - ORAL MUCOSA EROSION [None]
  - MUCOSAL EROSION [None]
